FAERS Safety Report 6832606-4 (Version None)
Quarter: 2010Q3

REPORT INFORMATION
  Report Type: 
  Country: None (occurrence: None)
  Receive Date: 20100712
  Receipt Date: 20070404
  Transmission Date: 20110219
  Serious: No
  Sender: FDA-Public Use
  Company Number: US-PFIZER INC-2007020531

PATIENT
  Sex: Female
  Weight: 69.4 kg

DRUGS (6)
  1. CHANTIX [Suspect]
     Indication: SMOKING CESSATION THERAPY
     Dates: start: 20070308, end: 20070308
  2. MONTELUKAST SODIUM [Concomitant]
  3. ISOSORBIDE MONONITRATE [Concomitant]
  4. DILTIAZEM [Concomitant]
  5. ACETYLSALICYLIC ACID [Concomitant]
  6. VITAMINS [Concomitant]

REACTIONS (8)
  - ABDOMINAL DISCOMFORT [None]
  - DIZZINESS [None]
  - HEADACHE [None]
  - HYPERHIDROSIS [None]
  - MALAISE [None]
  - NAUSEA [None]
  - NERVOUSNESS [None]
  - TREMOR [None]
